FAERS Safety Report 9972982 (Version 1)
Quarter: 2014Q1

REPORT INFORMATION
  Report Type: Spontaneous
  Country: US (occurrence: US)
  Receive Date: 20140306
  Receipt Date: 20140306
  Transmission Date: 20141002
  Serious: No
  Sender: FDA-Public Use
  Company Number: US-PFIZER INC-2014062338

PATIENT
  Age: 27 Year
  Sex: Female
  Weight: 68.03 kg

DRUGS (2)
  1. EFFEXOR XR [Suspect]
     Indication: PANIC ATTACK
     Dosage: 75 MG, 3X/DAY
     Dates: start: 201304
  2. EFFEXOR XR [Suspect]
     Dosage: 75MG EVERY TWO DAYS
     Dates: start: 201402

REACTIONS (5)
  - Intentional drug misuse [Unknown]
  - Feeling abnormal [Unknown]
  - Headache [Unknown]
  - Drug withdrawal syndrome [Unknown]
  - Chills [Unknown]
